FAERS Safety Report 20578710 (Version 1)
Quarter: 2022Q1

REPORT INFORMATION
  Report Type: Spontaneous
  Country: US (occurrence: None)
  Receive Date: 20220310
  Receipt Date: 20220310
  Transmission Date: 20220424
  Serious: Yes (unspecified)
  Sender: FDA-Public Use
  Company Number: None

PATIENT
  Age: 72 Year
  Sex: Male
  Weight: 118 kg

DRUGS (1)
  1. WARFARIN SODIUM [Suspect]
     Active Substance: WARFARIN SODIUM
     Indication: Cerebrovascular accident prophylaxis

REACTIONS (4)
  - Subdural haemorrhage [None]
  - Haemorrhage [None]
  - Therapy interrupted [None]
  - Haematoma [None]

NARRATIVE: CASE EVENT DATE: 20210125
